FAERS Safety Report 8202250-5 (Version None)
Quarter: 2012Q1

REPORT INFORMATION
  Report Type: 
  Country: None (occurrence: None)
  Receive Date: 20120312
  Receipt Date: 20120201
  Transmission Date: 20120608
  Serious: Yes (Death)
  Sender: FDA-Public Use
  Company Number: FI-PFIZER INC-2012048931

PATIENT
  Age: 26 Year
  Sex: Male

DRUGS (4)
  1. TEMAZEPAM [Concomitant]
  2. DIAZEPAM [Concomitant]
  3. OXAZEPAM [Concomitant]
  4. PREGABALIN [Suspect]
     Dosage: UNK

REACTIONS (2)
  - POISONING [None]
  - ACCIDENT [None]
